FAERS Safety Report 5797344-8 (Version None)
Quarter: 2008Q3

REPORT INFORMATION
  Report Type: 
  Country: None (occurrence: None)
  Receive Date: 20080701
  Receipt Date: 20080626
  Transmission Date: 20090109
  Serious: Yes (Life-Threatening)
  Sender: FDA-Public Use
  Company Number: US-BOEHRINGER INGELHEIM GMBH, GERMANY-2008-BP-10106BP

PATIENT
  Sex: Female

DRUGS (1)
  1. DULCOLAX [Suspect]
     Indication: CONSTIPATION
     Route: 054
     Dates: start: 20060626

REACTIONS (5)
  - CYANOSIS [None]
  - DIZZINESS [None]
  - DYSPNOEA [None]
  - HEADACHE [None]
  - SKIN DISCOLOURATION [None]
